FAERS Safety Report 14123395 (Version 1)
Quarter: 2017Q4

REPORT INFORMATION
  Report Type: Spontaneous
  Country: US (occurrence: US)
  Receive Date: 20171025
  Receipt Date: 20171025
  Transmission Date: 20180321
  Serious: Yes (Other)
  Sender: FDA-Public Use
  Company Number: None

PATIENT
  Age: 39 Year
  Sex: Female
  Weight: 70.65 kg

DRUGS (2)
  1. FLUCONAZOLE TABLET USP [Suspect]
     Active Substance: FLUCONAZOLE
     Indication: FUNGAL INFECTION
     Dosage: ?          QUANTITY:1 TABLET(S);OTHER FREQUENCY:ONCE; ORAL?
     Route: 048
     Dates: start: 20170915, end: 20171023
  2. LEVOTHYROXINE. [Concomitant]
     Active Substance: LEVOTHYROXINE

REACTIONS (1)
  - Toxic epidermal necrolysis [None]

NARRATIVE: CASE EVENT DATE: 20171024
